FAERS Safety Report 8574711-0 (Version None)
Quarter: 2012Q3

REPORT INFORMATION
  Report Type: 
  Country: None (occurrence: None)
  Receive Date: 20120807
  Receipt Date: 20120726
  Transmission Date: 20120928
  Serious: Yes (Hospitalization)
  Sender: FDA-Public Use
  Company Number: US-BIOGENIDEC-2012BI025459

PATIENT
  Age: 54 Year
  Sex: Female

DRUGS (7)
  1. HYDROCODONE BITARTRATE [Concomitant]
  2. GABAPENTIN [Concomitant]
  3. DEPAKOTE [Concomitant]
  4. TRAMADOL HCL [Concomitant]
  5. TYSABRI [Suspect]
     Indication: MULTIPLE SCLEROSIS
     Route: 042
     Dates: start: 20120120
  6. MIRTAZAPINE [Concomitant]
  7. SUMATRITAN [Concomitant]

REACTIONS (4)
  - DEHYDRATION [None]
  - PAIN [None]
  - ENCEPHALOPATHY [None]
  - WOUND [None]
